FAERS Safety Report 13102231 (Version 3)
Quarter: 2017Q3

REPORT INFORMATION
  Report Type: Spontaneous
  Country: TR (occurrence: TR)
  Receive Date: 20170110
  Receipt Date: 20170726
  Transmission Date: 20171127
  Serious: Yes (Other)
  Sender: FDA-Public Use
  Company Number: TR-JNJFOC-20170106830

PATIENT
  Age: 32 Year
  Sex: Male

DRUGS (3)
  1. KETOCONAZOLE. [Suspect]
     Active Substance: KETOCONAZOLE
     Indication: TINEA VERSICOLOUR
     Route: 061
  2. ITRASPOR [Suspect]
     Active Substance: ITRACONAZOLE
     Indication: TINEA VERSICOLOUR
     Route: 048
     Dates: start: 20160127, end: 20160127
  3. ITRASPOR [Suspect]
     Active Substance: ITRACONAZOLE
     Indication: TINEA VERSICOLOUR
     Route: 048
     Dates: start: 20160122, end: 20160126

REACTIONS (4)
  - Petechiae [Recovering/Resolving]
  - Thrombocytopenia [Recovering/Resolving]
  - Bone marrow failure [Unknown]
  - Rash [Recovering/Resolving]

NARRATIVE: CASE EVENT DATE: 20160125
